FAERS Safety Report 9641589 (Version 1)
Quarter: 2013Q4

REPORT INFORMATION
  Report Type: Spontaneous
  Country: JP (occurrence: None)
  Receive Date: 20131021
  Receipt Date: 20131021
  Transmission Date: 20140711
  Serious: Yes (Other)
  Sender: FDA-Public Use
  Company Number: FK201304631

PATIENT
  Age: 72 Year
  Sex: Male
  Weight: 61 kg

DRUGS (4)
  1. DOXORUBICIN [Suspect]
     Indication: DIFFUSE LARGE B-CELL LYMPHOMA
     Dosage: 80MG, ON DAY 1
  2. CYCLOPHOSPHAMIDE (MANUFACTURER UNKNOWN) (CYCLOPHOSPHAMIDE) (CYCLOPHOSPHAMIDE) [Suspect]
     Indication: DIFFUSE LARGE B-CELL LYMPHOMA
     Dosage: 1200 MG, ON DAY 1
  3. PREDNISOLONE [Suspect]
     Indication: DIFFUSE LARGE B-CELL LYMPHOMA
     Dosage: 60MG, ON DAYS 1 5
  4. RECOMBINANT ANTI-CD20 ANTIBODY RITUXIMAB (RITUXIMAB) [Concomitant]

REACTIONS (9)
  - Pneumocystis jirovecii pneumonia [None]
  - Cytomegalovirus infection [None]
  - Hepatosplenomegaly [None]
  - Lymphadenopathy [None]
  - Thrombocytopenia [None]
  - Hypothyroidism [None]
  - Muscular weakness [None]
  - Sensory loss [None]
  - Anorectal disorder [None]
